FAERS Safety Report 6515418-0 (Version None)
Quarter: 2009Q4

REPORT INFORMATION
  Report Type: 
  Country: None (occurrence: None)
  Receive Date: 20091223
  Receipt Date: 20091215
  Transmission Date: 20100525
  Serious: Yes (Other)
  Sender: FDA-Public Use
  Company Number: US-ROCHE-674922

PATIENT
  Sex: Male
  Weight: 61.2 kg

DRUGS (11)
  1. PEGASYS [Suspect]
     Route: 058
     Dates: start: 20090801
  2. RIBAVIRIN [Suspect]
     Route: 048
     Dates: start: 20090801
  3. SPIRONOLACTONE [Concomitant]
  4. TRECATOR [Concomitant]
  5. NORVIR [Concomitant]
  6. ALPRAZOLAM [Concomitant]
  7. LIPITOR [Concomitant]
  8. RESTORIL [Concomitant]
  9. NORCO [Concomitant]
  10. PHERGAN [Concomitant]
  11. FLEXERIL [Concomitant]

REACTIONS (5)
  - ARTHRALGIA [None]
  - CHOLECYSTECTOMY [None]
  - FATIGUE [None]
  - HEPATIC NEOPLASM [None]
  - WEIGHT DECREASED [None]
